FAERS Safety Report 19704521 (Version 2)
Quarter: 2021Q3

REPORT INFORMATION
  Report Type: Report from Study
  Country: CO (occurrence: CO)
  Receive Date: 20210816
  Receipt Date: 20210823
  Transmission Date: 20211014
  Serious: Yes (Death, Life-Threatening, Other)
  Sender: FDA-Public Use
  Company Number: NVSC2021CO184365

PATIENT
  Sex: Female

DRUGS (1)
  1. REVOLADE [Suspect]
     Active Substance: ELTROMBOPAG OLAMINE
     Indication: APLASTIC ANAEMIA
     Dosage: 150 MG, QD
     Route: 048

REACTIONS (7)
  - Platelet count increased [Recovering/Resolving]
  - Neoplasm malignant [Unknown]
  - Cardiac arrest [Fatal]
  - Brain stem stroke [Fatal]
  - Arthralgia [Unknown]
  - Hip fracture [Unknown]
  - Pain [Unknown]
